FAERS Safety Report 15391772 (Version 3)
Quarter: 2018Q4

REPORT INFORMATION
  Report Type: Spontaneous
  Country: CN (occurrence: CN)
  Receive Date: 20180917
  Receipt Date: 20181023
  Transmission Date: 20190204
  Serious: Yes (Life-Threatening, Other)
  Sender: FDA-Public Use
  Company Number: CN-CELGENEUS-CHN-20180903582

PATIENT
  Age: 74 Year
  Sex: Female

DRUGS (27)
  1. MEROPENEM. [Concomitant]
     Active Substance: MEROPENEM
     Dosage: 3000 MILLIGRAM
     Route: 041
     Dates: start: 20180831, end: 20180911
  2. G-CSF [Concomitant]
     Active Substance: GRANULOCYTE COLONY-STIMULATING FACTOR NOS
     Indication: ANAEMIA
     Dosage: 3000 MILLIGRAM
     Route: 059
     Dates: start: 20180901, end: 20180926
  3. SPIRONOLACTONE. [Concomitant]
     Active Substance: SPIRONOLACTONE
     Indication: DIURETIC THERAPY
     Dosage: 20 MILLIGRAM
     Route: 048
     Dates: start: 20180819, end: 20180827
  4. COENZYME COMPLEX [Concomitant]
     Active Substance: UNSPECIFIED INGREDIENT
     Indication: CARDIOVASCULAR EVENT PROPHYLAXIS
     Dosage: 12.5 GRAM
     Route: 041
     Dates: start: 20180829, end: 20180926
  5. CREATINE PHOSPHATE [Concomitant]
     Active Substance: PHOSPHOCREATINE
     Dosage: 12.5 GRAM
     Route: 041
     Dates: start: 20180829, end: 20180926
  6. HYDROXYCARBAMIDE [Concomitant]
     Active Substance: HYDROXYUREA
     Indication: HYPERLEUKOCYTOSIS
     Dosage: 3 MILLIGRAM
     Route: 065
     Dates: start: 20180829, end: 20180830
  7. FEBUXOSTAT. [Concomitant]
     Active Substance: FEBUXOSTAT
     Indication: PROPHYLAXIS
     Route: 048
     Dates: start: 20180829, end: 20180918
  8. SODIUM BICARBONATE. [Concomitant]
     Active Substance: SODIUM BICARBONATE
     Indication: PROPHYLAXIS
     Route: 041
     Dates: start: 20180829, end: 20180902
  9. AMINO ACID [Concomitant]
     Active Substance: AMINO ACIDS
     Dosage: 12.5 GRAM
     Route: 041
     Dates: start: 20180904, end: 20180926
  10. COENZYME COMPLEX [Concomitant]
     Active Substance: UNSPECIFIED INGREDIENT
     Indication: HEPATIC FAILURE
     Dosage: 400 IU (INTERNATIONAL UNIT)
     Route: 041
     Dates: start: 20180809, end: 20180826
  11. GLUTATHIONE [Concomitant]
     Active Substance: GLUTATHIONE
     Indication: PROPHYLAXIS
     Dosage: 2.4 GRAM
     Route: 041
     Dates: start: 20180919, end: 20180926
  12. AZACITIDINE. [Suspect]
     Active Substance: AZACITIDINE
     Indication: ACUTE MYELOID LEUKAEMIA
     Dosage: 75 MILLIGRAM/SQ. METER
     Route: 058
     Dates: start: 20180830
  13. 5% DEXTROSE IN WATER [Concomitant]
     Indication: PROPHYLAXIS
     Route: 041
     Dates: start: 20180829, end: 20180902
  14. CREATINE PHOSPHATE [Concomitant]
     Active Substance: PHOSPHOCREATINE
     Indication: PROPHYLAXIS
     Dosage: 400 IU (INTERNATIONAL UNIT)
     Route: 041
     Dates: start: 20180809, end: 20180827
  15. PRIMAXIN IV [Concomitant]
     Active Substance: CILASTATIN SODIUM\IMIPENEM
     Indication: LUNG INFECTION
     Dosage: 400 IU (INTERNATIONAL UNIT)
     Route: 041
     Dates: start: 20180830, end: 20180830
  16. VENETOCLAX. [Concomitant]
     Active Substance: VENETOCLAX
     Indication: ACUTE MYELOID LEUKAEMIA
     Dosage: 400 MILLIGRAM
     Route: 048
     Dates: start: 20180830, end: 20180830
  17. VENETOCLAX. [Concomitant]
     Active Substance: VENETOCLAX
     Dosage: 400 MILLIGRAM
     Route: 048
     Dates: start: 20180831, end: 20180831
  18. NORMAL SALINE SOLUTION [Concomitant]
     Indication: PROPHYLAXIS
     Route: 041
     Dates: start: 20180829, end: 20180902
  19. ALANYL GLUTAMINE [Concomitant]
     Active Substance: ALANYL GLUTAMINE
     Indication: SUPPLEMENTATION THERAPY
     Route: 041
     Dates: start: 20180809, end: 20180827
  20. HYDROCHLOROTHIAZIDE. [Concomitant]
     Active Substance: HYDROCHLOROTHIAZIDE
     Indication: DIURETIC THERAPY
     Dosage: 400 IU (INTERNATIONAL UNIT)
     Route: 048
     Dates: start: 20180809, end: 20180827
  21. AMINO ACID [Concomitant]
     Active Substance: AMINO ACIDS
     Indication: SUPPLEMENTATION THERAPY
     Dosage: 12.5 GRAM
     Route: 041
     Dates: start: 20180809, end: 20180827
  22. SPIRONOLACTONE. [Concomitant]
     Active Substance: SPIRONOLACTONE
     Indication: CARDIAC DISORDER
     Dosage: 40 MILLIGRAM
     Route: 048
     Dates: start: 20180906, end: 20180911
  23. ALANYL GLUTAMINE [Concomitant]
     Active Substance: ALANYL GLUTAMINE
     Route: 041
     Dates: start: 20180904, end: 20180926
  24. VENETOCLAX. [Concomitant]
     Active Substance: VENETOCLAX
     Dosage: 400 MILLIGRAM
     Route: 048
     Dates: start: 20180901
  25. HYDROCHLOROTHIAZIDE. [Concomitant]
     Active Substance: HYDROCHLOROTHIAZIDE
     Indication: CARDIAC DISORDER
     Dosage: 12.5 GRAM
     Route: 048
     Dates: start: 20180906, end: 20180926
  26. MEROPENEM. [Concomitant]
     Active Substance: MEROPENEM
     Indication: LUNG INFECTION
     Dosage: 3000 MILLIGRAM
     Route: 041
     Dates: start: 20180814, end: 20180827
  27. RABEPRAZOLE SODIUM. [Concomitant]
     Active Substance: RABEPRAZOLE SODIUM
     Indication: GASTRITIS PROPHYLAXIS
     Dosage: 20 MILLIGRAM
     Route: 041
     Dates: start: 20180829, end: 20180918

REACTIONS (1)
  - Hypoxia [Recovered/Resolved]

NARRATIVE: CASE EVENT DATE: 20180903
